FAERS Safety Report 7945090-4 (Version None)
Quarter: 2011Q4

REPORT INFORMATION
  Report Type: 
  Country: None (occurrence: None)
  Receive Date: 20111129
  Receipt Date: 20111121
  Transmission Date: 20120403
  Serious: Yes (Other)
  Sender: FDA-Public Use
  Company Number: US-UCBSA-044769

PATIENT
  Age: 26 Year
  Sex: Female
  Weight: 61 kg

DRUGS (2)
  1. LEVETIRACETAM [Suspect]
     Indication: CONVULSION
     Dosage: DAILY DOSE:1000MG
     Route: 048
     Dates: start: 20111021
  2. OXCARBAZEPINE [Concomitant]
     Indication: CONVULSION
     Dosage: DAILY DOSE:1200MG
     Route: 048
     Dates: start: 20090326

REACTIONS (6)
  - EMOTIONAL DISORDER [None]
  - AURA [None]
  - DECREASED APPETITE [None]
  - CLUMSINESS [None]
  - SOMNOLENCE [None]
  - WEIGHT DECREASED [None]
